FAERS Safety Report 9401912 (Version 6)
Quarter: 2015Q1

REPORT INFORMATION
  Report Type: Spontaneous
  Country: US (occurrence: US)
  Receive Date: 20130716
  Receipt Date: 20150324
  Transmission Date: 20150721
  Serious: No
  Sender: FDA-Public Use
  Company Number: US-PFIZER INC-2013204251

PATIENT
  Age: 58 Year
  Sex: Female
  Weight: 43.99 kg

DRUGS (2)
  1. LEVOXYL [Suspect]
     Active Substance: LEVOTHYROXINE SODIUM
     Indication: HYPOTHYROIDISM
     Dosage: 62.5 UG, 1X/DAY (CUTTING 125MCG TABLET INTO HALF)
     Route: 048
     Dates: start: 2003, end: 201304
  2. LEVOXYL [Suspect]
     Active Substance: LEVOTHYROXINE SODIUM
     Indication: AUTOIMMUNE THYROIDITIS

REACTIONS (6)
  - Thyroid function test abnormal [Unknown]
  - Malaise [Unknown]
  - Blood thyroid stimulating hormone abnormal [Unknown]
  - Burning sensation [Unknown]
  - General physical health deterioration [Unknown]
  - Weight decreased [Unknown]

NARRATIVE: CASE EVENT DATE: 2013
